FAERS Safety Report 13509487 (Version 3)
Quarter: 2017Q2

REPORT INFORMATION
  Report Type: Spontaneous
  Country: JP (occurrence: JP)
  Receive Date: 20170503
  Receipt Date: 20170526
  Transmission Date: 20170830
  Serious: Yes (Death)
  Sender: FDA-Public Use
  Company Number: JP-ASTRAZENECA-2017SE46973

PATIENT
  Age: 15182 Day
  Sex: Male
  Weight: 107 kg

DRUGS (2)
  1. MICAMLO [Concomitant]
     Active Substance: AMLODIPINE BESYLATE\TELMISARTAN
     Indication: HYPERTENSION
     Dosage: DOSE UNKNOWN, EVERY DAY
     Route: 048
     Dates: start: 20170209, end: 201703
  2. FORXIGA [Suspect]
     Active Substance: DAPAGLIFLOZIN
     Indication: DIABETES MELLITUS
     Route: 048
     Dates: start: 20170209, end: 201703

REACTIONS (1)
  - Death [Fatal]

NARRATIVE: CASE EVENT DATE: 20170307
